FAERS Safety Report 9845697 (Version 1)
Quarter: 2014Q1

REPORT INFORMATION
  Report Type: Spontaneous
  Country: US (occurrence: None)
  Receive Date: 20140122
  Receipt Date: 20140122
  Transmission Date: 20141002
  Serious: Yes (Hospitalization)
  Sender: FDA-Public Use
  Company Number: SYM-2014-14798

PATIENT
  Sex: 0

DRUGS (1)
  1. WELLBUTRIN (BUPROPION HYDROCHLORIDE) (TABLET) (BUPROPION HYDROCHLORIDE) [Suspect]
     Indication: PRODUCT USED FOR UNKNOWN INDICATION

REACTIONS (2)
  - Investigation [None]
  - Unevaluable event [None]
